FAERS Safety Report 20078216 (Version 1)
Quarter: 2021Q4

REPORT INFORMATION
  Report Type: Spontaneous
  Country: US (occurrence: US)
  Receive Date: 20211117
  Receipt Date: 20211117
  Transmission Date: 20220303
  Serious: No
  Sender: FDA-Public Use
  Company Number: US-TEVA-2021-US-1977068

PATIENT
  Sex: Male

DRUGS (1)
  1. NEFAZODONE HYDROCHLORIDE [Suspect]
     Active Substance: NEFAZODONE HYDROCHLORIDE
     Route: 065

REACTIONS (7)
  - Anxiety [Unknown]
  - Depression [Unknown]
  - Headache [Not Recovered/Not Resolved]
  - Nausea [Unknown]
  - Dizziness [Unknown]
  - Vertigo [Unknown]
  - Insomnia [Unknown]
